FAERS Safety Report 23998757 (Version 1)
Quarter: 2024Q2

REPORT INFORMATION
  Report Type: Spontaneous
  Country: JP (occurrence: JP)
  Receive Date: 20240621
  Receipt Date: 20240621
  Transmission Date: 20240715
  Serious: Yes (Life-Threatening, Hospitalization, Other)
  Sender: FDA-Public Use
  Company Number: JP-Indoco-000562

PATIENT
  Age: 79 Year
  Sex: Female

DRUGS (6)
  1. SUCCINYLCHOLINE CHLORIDE [Suspect]
     Active Substance: SUCCINYLCHOLINE CHLORIDE
     Indication: Induction of anaesthesia
  2. THIOPENTAL SODIUM [Concomitant]
     Active Substance: THIOPENTAL SODIUM
     Indication: Induction of anaesthesia
  3. ATROPINE [Concomitant]
     Active Substance: ATROPINE\ATROPINE SULFATE
  4. LANDIOLOL HYDROCHLORIDE [Concomitant]
     Active Substance: LANDIOLOL HYDROCHLORIDE
  5. NICARDIPINE [Concomitant]
     Active Substance: NICARDIPINE
  6. LEMBOREXANT [Concomitant]
     Active Substance: LEMBOREXANT
     Indication: Major depression
     Route: 048

REACTIONS (2)
  - Hyperthermia malignant [Recovered/Resolved]
  - Pneumonia aspiration [Recovered/Resolved]
